FAERS Safety Report 10632449 (Version 1)
Quarter: 2014Q4

REPORT INFORMATION
  Report Type: Spontaneous
  Country: US (occurrence: US)
  Receive Date: 20141205
  Receipt Date: 20141205
  Transmission Date: 20150529
  Serious: No
  Sender: FDA-Public Use
  Company Number: US-BRISTOL-MYERS SQUIBB COMPANY-21491063

PATIENT
  Age: 56 Year
  Sex: Female

DRUGS (1)
  1. SPRYCEL [Suspect]
     Active Substance: DASATINIB
     Dosage: TABS, INTERRUPTED ON: 04OCT14?STARTED ON 08OCT14
     Route: 048
     Dates: start: 20140916

REACTIONS (3)
  - Fluid retention [Recovering/Resolving]
  - Pain [Not Recovered/Not Resolved]
  - Biopsy bone [Recovered/Resolved]

NARRATIVE: CASE EVENT DATE: 2014
